FAERS Safety Report 12287993 (Version 1)
Quarter: 2016Q2

REPORT INFORMATION
  Report Type: Spontaneous
  Country: US (occurrence: US)
  Receive Date: 20160420
  Receipt Date: 20160420
  Transmission Date: 20160815
  Serious: Yes (Hospitalization)
  Sender: FDA-Public Use
  Company Number: US-BIOGEN-2016BI00223124

PATIENT
  Sex: Female

DRUGS (1)
  1. TECFIDERA [Suspect]
     Active Substance: DIMETHYL FUMARATE
     Indication: MULTIPLE SCLEROSIS
     Route: 048
     Dates: start: 20151027, end: 20160412

REACTIONS (4)
  - Multiple sclerosis relapse [Not Recovered/Not Resolved]
  - Weight increased [Not Recovered/Not Resolved]
  - Gastrooesophageal reflux disease [Recovered/Resolved with Sequelae]
  - Nausea [Recovered/Resolved with Sequelae]
